FAERS Safety Report 5031713-9 (Version None)
Quarter: 2006Q2

REPORT INFORMATION
  Report Type: 
  Country: None (occurrence: None)
  Receive Date: 20060616
  Receipt Date: 20060530
  Transmission Date: 20061013
  Serious: Yes (Hospitalization)
  Sender: FDA-Public Use
  Company Number: US200603000217

PATIENT
  Age: 44 Year
  Sex: Female
  Weight: 61.7 kg

DRUGS (7)
  1. ZYPREXA (OLANZAZPINE) TABLET [Suspect]
     Indication: MAJOR DEPRESSION
     Dates: start: 19990901, end: 20040801
  2. PROZAC [Concomitant]
  3. METFORMIN [Concomitant]
  4. ABILIFY [Concomitant]
  5. HALDOL [Concomitant]
  6. WELLBUTRIN [Concomitant]
  7. ZOLOFT [Concomitant]

REACTIONS (7)
  - DIABETES MELLITUS [None]
  - GASTRIC CANCER [None]
  - HYPERTENSION [None]
  - HYSTERECTOMY [None]
  - OBESITY [None]
  - VISION BLURRED [None]
  - WEIGHT DECREASED [None]
